FAERS Safety Report 8384434-9 (Version None)
Quarter: 2012Q2

REPORT INFORMATION
  Report Type: 
  Country: None (occurrence: None)
  Receive Date: 20120524
  Receipt Date: 20120517
  Transmission Date: 20120825
  Serious: Yes (Death, Hospitalization)
  Sender: FDA-Public Use
  Company Number: US-GLAXOSMITHKLINE-A0978051A

PATIENT
  Age: 64 Year
  Sex: Male

DRUGS (3)
  1. ARIXTRA [Suspect]
     Indication: PULMONARY EMBOLISM
     Dosage: 7.5MG PER DAY
     Dates: start: 20111214
  2. MORPHINE [Concomitant]
  3. LIQUID MORPHINE [Concomitant]

REACTIONS (2)
  - NEOPLASM MALIGNANT [None]
  - BLOOD GLUCOSE DECREASED [None]
